FAERS Safety Report 17506016 (Version 1)
Quarter: 2020Q1

REPORT INFORMATION
  Report Type: Spontaneous
  Country: US (occurrence: US)
  Receive Date: 20200305
  Receipt Date: 20200305
  Transmission Date: 20200409
  Serious: Yes (Other)
  Sender: FDA-Public Use
  Company Number: US-ROCHE-2387896

PATIENT

DRUGS (1)
  1. XOLAIR [Suspect]
     Active Substance: OMALIZUMAB
     Indication: PRODUCT USED FOR UNKNOWN INDICATION
     Dosage: BENEATH THE SKIN, USUALLY VIA INJECTION, ONGOING: NO
     Route: 058

REACTIONS (2)
  - Pancreatitis [Unknown]
  - Hypertriglyceridaemia [Unknown]
